FAERS Safety Report 4602697-X (Version None)
Quarter: 2005Q1

REPORT INFORMATION
  Report Type: 
  Country: None (occurrence: None)
  Receive Date: 20050307
  Receipt Date: 20050222
  Transmission Date: 20050727
  Serious: Yes (Hospitalization)
  Sender: FDA-Public Use
  Company Number: 2005024277

PATIENT
  Age: 54 Year
  Sex: Female
  Weight: 84.8226 kg

DRUGS (4)
  1. LINEZOLID TABLET (LINEZOLID) [Suspect]
     Indication: OSTEOMYELITIS
     Dosage: 1200 MG (600 MG, TWICE DAILY), ORAL
     Route: 048
     Dates: start: 20031010
  2. LEVOTHYROXINE SODIUM [Concomitant]
  3. CLONAZEPAM [Concomitant]
  4. FLUOXETINE HYDRCHLORIDE (FLUOXETINE HYDROCHLORIDE) [Concomitant]

REACTIONS (1)
  - GRAND MAL CONVULSION [None]
